FAERS Safety Report 9991503 (Version 1)
Quarter: 2014Q1

REPORT INFORMATION
  Report Type: Report from Study
  Country: US (occurrence: US)
  Receive Date: 20140310
  Receipt Date: 20140310
  Transmission Date: 20141002
  Serious: No
  Sender: FDA-Public Use
  Company Number: US-ABBVIE-13P-163-1133519-00

PATIENT
  Age: 24 Year
  Sex: Male
  Weight: 68.1 kg

DRUGS (12)
  1. HUMIRA [Suspect]
     Indication: CROHN^S DISEASE
     Route: 058
     Dates: end: 2013
  2. HUMIRA [Suspect]
     Indication: CROHN^S DISEASE
     Route: 058
     Dates: start: 2010
  3. CLONIDINE [Concomitant]
     Indication: TOURETTE^S DISORDER
  4. PREDNISONE [Concomitant]
     Indication: GASTROINTESTINAL INFLAMMATION
  5. GABAPENTIN [Concomitant]
     Indication: DEPRESSION
  6. GABAPENTIN [Concomitant]
     Indication: ANXIETY
  7. PAROXETINE [Concomitant]
     Indication: DEPRESSION
  8. PAROXETINE [Concomitant]
     Indication: ANXIETY
  9. TRAZODONE [Concomitant]
     Indication: SLEEP DISORDER
  10. ZIPRASIDONE [Concomitant]
     Indication: PRODUCT USED FOR UNKNOWN INDICATION
  11. VITAMIN D3 [Concomitant]
     Indication: ANAEMIA
  12. MULTIPLE VITAMIN [Concomitant]
     Indication: PRODUCT USED FOR UNKNOWN INDICATION

REACTIONS (3)
  - Abdominal pain [Not Recovered/Not Resolved]
  - Abdominal pain [Not Recovered/Not Resolved]
  - Drug ineffective [Unknown]
